FAERS Safety Report 8313295-9 (Version None)
Quarter: 2012Q2

REPORT INFORMATION
  Report Type: 
  Country: None (occurrence: None)
  Receive Date: 20120425
  Receipt Date: 20120425
  Transmission Date: 20120825
  Serious: No
  Sender: FDA-Public Use
  Company Number: None

PATIENT
  Age: 8 Year
  Sex: Male
  Weight: 18.1439 kg

DRUGS (2)
  1. FLOVENT [Suspect]
     Indication: ASTHMA
     Dosage: 2 PUFFS W/ 6 BREATHS TWICE DAILY
     Route: 055
     Dates: start: 20110301
  2. FLOVENT [Suspect]
     Indication: ASTHMA
     Dosage: 2 PUFFS W/ 6 BREATHS TWICE DAILY
     Route: 055
     Dates: start: 20090201

REACTIONS (2)
  - GROWTH RETARDATION [None]
  - ADRENAL SUPPRESSION [None]
